FAERS Safety Report 7831861-1 (Version None)
Quarter: 2011Q4

REPORT INFORMATION
  Report Type: 
  Country: None (occurrence: None)
  Receive Date: 20111021
  Receipt Date: 20111012
  Transmission Date: 20120403
  Serious: Yes (Other)
  Sender: FDA-Public Use
  Company Number: US-US-EMD SERONO, INC.-231887J10USA

PATIENT
  Sex: Male
  Weight: 97 kg

DRUGS (9)
  1. REBIF [Suspect]
     Indication: MULTIPLE SCLEROSIS
     Route: 058
     Dates: start: 20091103
  2. TAGAMET [Concomitant]
     Indication: NAUSEA
     Route: 048
     Dates: start: 20100121
  3. LANSOPRAZOLE [Concomitant]
     Route: 058
     Dates: start: 20110815
  4. WELLBUTRIN [Concomitant]
     Route: 048
     Dates: start: 20100211
  5. PREDNISONE TAB [Concomitant]
     Indication: PREMEDICATION
     Dates: start: 20100624
  6. KLONOPIN [Concomitant]
     Route: 048
     Dates: start: 20100211
  7. DRONABINOL [Concomitant]
     Indication: NAUSEA
     Route: 048
     Dates: start: 20100121
  8. LORAZEPAM [Concomitant]
  9. HYDROCODONE BITARTRATE AND IBUPROFEN [Concomitant]
     Route: 048
     Dates: start: 20100422

REACTIONS (3)
  - METASTASES TO BONE [None]
  - FEAR OF NEEDLES [None]
  - INJECTION SITE PAIN [None]
